FAERS Safety Report 5423317-0 (Version None)
Quarter: 2007Q3

REPORT INFORMATION
  Report Type: 
  Country: None (occurrence: None)
  Receive Date: 20070823
  Receipt Date: 20070810
  Transmission Date: 20080115
  Serious: Yes (Hospitalization)
  Sender: FDA-Public Use
  Company Number: PHHO2007US13793

PATIENT
  Sex: Male
  Weight: 116 kg

DRUGS (2)
  1. ZOMETA [Suspect]
     Indication: PROSTATE CANCER
     Dosage: 4MG EVERY 4 WEEKS
     Route: 042
     Dates: start: 20070530
  2. VITAMIN D [Concomitant]

REACTIONS (8)
  - BIOPSY BONE [None]
  - CELLULITIS STAPHYLOCOCCAL [None]
  - CELLULITIS STREPTOCOCCAL [None]
  - DIABETIC NEUROPATHY [None]
  - OEDEMA PERIPHERAL [None]
  - OSTEOMYELITIS ACUTE [None]
  - PAIN IN EXTREMITY [None]
  - WOUND DEBRIDEMENT [None]
